FAERS Safety Report 7242111-1 (Version None)
Quarter: 2011Q1

REPORT INFORMATION
  Report Type: 
  Country: None (occurrence: None)
  Receive Date: 20110124
  Receipt Date: 20110121
  Transmission Date: 20110831
  Serious: Yes (Hospitalization, Other)
  Sender: FDA-Public Use
  Company Number: US-PFIZER INC-2010010041

PATIENT
  Sex: Female
  Weight: 113 kg

DRUGS (25)
  1. GEODON [Concomitant]
     Dosage: 80 MG, UNK
  2. VALIUM [Concomitant]
     Indication: DEPRESSION
     Dosage: 5 MG, 3X/DAY
  3. VITAMIN B-12 [Concomitant]
     Dosage: 100 UG, 1X/DAY
  4. KLOR-CON [Concomitant]
     Dosage: 10 MEQ, 1X/DAY
  5. CHANTIX [Suspect]
     Dosage: UNK
     Route: 048
     Dates: start: 20100101
  6. ESTROPIPATE [Concomitant]
     Dosage: 0.625 MG, UNK, ONE AT BED TIME
  7. RANITIDINE [Concomitant]
     Dosage: 300 MG, 2X/DAY
  8. ACETYLSALICYLIC ACID [Concomitant]
     Dosage: 81 MG, 1X/DAY
  9. ALBUTEROL [Concomitant]
     Dosage: UNK
  10. CHANTIX [Suspect]
     Indication: SMOKING CESSATION THERAPY
     Dosage: 1 MG, 2X/DAY
     Route: 048
     Dates: start: 20100208, end: 20100101
  11. HYDROXYZINE [Concomitant]
     Dosage: 25 MG, 3X/DAY
  12. ZOCOR [Concomitant]
     Dosage: 40 MG, 1X/DAY
  13. CARISOPRODOL [Concomitant]
     Dosage: 700 MG, 3X/DAY, TWO THREE TIMES A DAY
  14. IBUPROFEN [Concomitant]
     Dosage: 800 MG, 3X/DAY
  15. DIAZEPAM [Concomitant]
     Dosage: 20 MG, UNK,  TWO AT BED TIME
  16. LISINOPRIL [Concomitant]
     Dosage: 2.5 MG, 1X/DAY
  17. CHANTIX [Suspect]
     Dosage: UNK
     Dates: start: 20100101, end: 20100101
  18. FUROSEMIDE [Concomitant]
     Dosage: 40 MG, 1X/DAY, AS ONE EVERY MORNING
  19. COMBIVENT [Concomitant]
     Dosage: UNK
  20. OXYCODONE [Concomitant]
     Dosage: 30 MG, 4X/DAY
  21. METOCLOPRAMIDE [Concomitant]
     Dosage: 5 MG, 2X/DAY, ONE BEFORE EACH MEAL
  22. ZOLOFT [Concomitant]
     Indication: DEPRESSION
     Dosage: UNK MG, UNK
  23. MORPHINE [Concomitant]
     Dosage: 45 MG, 3X/DAY
  24. GEODON [Concomitant]
     Indication: DEPRESSION
     Dosage: 160 MG, UNK;  TWO AT BED TIME
  25. METOPROLOL [Concomitant]
     Dosage: 25 MG, 2X/DAY

REACTIONS (11)
  - PNEUMONIA STREPTOCOCCAL [None]
  - CARDIAC FAILURE CONGESTIVE [None]
  - INSOMNIA [None]
  - DEPRESSION [None]
  - POST-TRAUMATIC STRESS DISORDER [None]
  - SUICIDAL IDEATION [None]
  - ANXIETY [None]
  - DYSPNOEA [None]
  - SLEEP TERROR [None]
  - HALLUCINATION [None]
  - HOMICIDAL IDEATION [None]
